FAERS Safety Report 7975527 (Version 2)
Quarter: 2013Q2

REPORT INFORMATION
  Report Type: Report from Study
  Country: MX (occurrence: MX)
  Receive Date: 20110606
  Receipt Date: 20130607
  Transmission Date: 20140414
  Serious: Yes (Hospitalization, Other)
  Sender: FDA-Public Use
  Company Number: PHHY2011MX46069

PATIENT
  Age: 64 Year
  Sex: Female

DRUGS (1)
  1. ACLASTA [Suspect]
     Indication: OSTEOPOROSIS
     Dosage: 5 MG/100 ML
     Route: 042
     Dates: start: 200911

REACTIONS (10)
  - Varicose vein [Unknown]
  - Blood pressure fluctuation [Unknown]
  - Angina pectoris [Unknown]
  - Cardiovascular disorder [Unknown]
  - Fluid retention [Unknown]
  - Dyspnoea [Unknown]
  - Dizziness [Unknown]
  - Balance disorder [Unknown]
  - Insomnia [Unknown]
  - Fatigue [Unknown]
